FAERS Safety Report 8833721 (Version 1)
Quarter: 2012Q4

REPORT INFORMATION
  Report Type: 
  Country: JP (occurrence: JP)
  Receive Date: 20121010
  Receipt Date: 20121010
  Transmission Date: 20130627
  Serious: Yes (Other)
  Sender: FDA-Public Use
  Company Number: JP-TEVA-361957ISR

PATIENT

DRUGS (1)
  1. FUROSEMIDE,INJ,20MG1AMPOULE [Suspect]

REACTIONS (1)
  - Pancytopenia [Unknown]
